FAERS Safety Report 9179879 (Version 1)
Quarter: 2013Q1

REPORT INFORMATION
  Report Type: Spontaneous
  Country: IT (occurrence: IT)
  Receive Date: 20130321
  Receipt Date: 20130321
  Transmission Date: 20140127
  Serious: Yes (Death, Other)
  Sender: FDA-Public Use
  Company Number: IT-WATSON-2013-04241

PATIENT
  Age: 53 Year
  Sex: Female

DRUGS (1)
  1. LORAZEPAM (WATSON LABORATORIES) [Suspect]
     Indication: HOMICIDE
     Dosage: UNK UNK, SINGLE
     Route: 065

REACTIONS (2)
  - Sedation [Fatal]
  - Intentional drug misuse [Fatal]
